FAERS Safety Report 16361849 (Version 17)
Quarter: 2020Q1

REPORT INFORMATION
  Report Type: Spontaneous
  Country: US (occurrence: US)
  Receive Date: 20190528
  Receipt Date: 20200309
  Transmission Date: 20200409
  Serious: Yes (Other)
  Sender: FDA-Public Use
  Company Number: US-PFIZER INC-2019225186

PATIENT
  Age: 59 Year
  Sex: Female

DRUGS (83)
  1. LOSARTAN POTASSIUM. [Concomitant]
     Active Substance: LOSARTAN POTASSIUM
     Indication: PROPHYLAXIS
     Dosage: 100 MG, 1X/DAY (HALF TABLET DAILY)
     Route: 048
  2. LOSARTAN POTASSIUM. [Concomitant]
     Active Substance: LOSARTAN POTASSIUM
     Dosage: 25 MG, 1X/DAY
     Route: 048
  3. KEPPRA XR [Concomitant]
     Active Substance: LEVETIRACETAM
     Dosage: 1250 MG, 2X/DAY
  4. VIMPAT [Concomitant]
     Active Substance: LACOSAMIDE
     Dosage: 50 MG, UNK
  5. AMARYL [Concomitant]
     Active Substance: GLIMEPIRIDE
     Dosage: 1 MG, 2X/DAY
  6. MILK OF MAGNESIA [Concomitant]
     Active Substance: MAGNESIUM HYDROXIDE
     Indication: CONSTIPATION
     Dosage: 30 ML, AS NEEDED (EVERY 12 HOURS)
     Route: 048
  7. TEGRETOL [Concomitant]
     Active Substance: CARBAMAZEPINE
     Dosage: UNK
  8. GLUCOPHAGE [Concomitant]
     Active Substance: METFORMIN HYDROCHLORIDE
     Dosage: 500 MG, DAILY
     Route: 048
  9. EFFEXOR XR [Concomitant]
     Active Substance: VENLAFAXINE HYDROCHLORIDE
     Dosage: 37.5 MG, 1X/DAY (1 EVERY MORNING)
     Route: 048
  10. IRON [Concomitant]
     Active Substance: IRON
     Dosage: 65 MG, UNK
  11. ZONISAMIDE. [Concomitant]
     Active Substance: ZONISAMIDE
     Dosage: 200 MG, DAILY
  12. KEPPRA XR [Concomitant]
     Active Substance: LEVETIRACETAM
     Dosage: 500 MG, 1X/DAY
     Route: 048
  13. NEURONTIN [Concomitant]
     Active Substance: GABAPENTIN
     Indication: HEADACHE
     Dosage: 400 MG, 1X/DAY (1 AT BED)
     Route: 048
  14. MIRTAZAPINE. [Concomitant]
     Active Substance: MIRTAZAPINE
     Indication: DEPRESSION
     Dosage: 30 MG, 1X/DAY (1 PILL BED)
     Route: 048
  15. LEVETIRACETAM. [Concomitant]
     Active Substance: LEVETIRACETAM
     Dosage: 750 MG, (1 EVERY 12 HOURS)
     Route: 048
  16. LEVETIRACETAM. [Concomitant]
     Active Substance: LEVETIRACETAM
     Dosage: 500 MG, (1 EVERY 12 HOURS)
     Route: 048
  17. HUMALOG [Concomitant]
     Active Substance: INSULIN LISPRO
     Indication: DIABETES MELLITUS
     Dosage: 100 UNITS/ML, 2X/DAY (5 UNITS AT BREAKFAST AND 5 UNITS AT DINNER)
     Route: 058
  18. VIMPAT [Concomitant]
     Active Substance: LACOSAMIDE
     Dosage: 200 MG, 2X/DAY
  19. PROAIR HFA [Concomitant]
     Active Substance: ALBUTEROL SULFATE
     Dosage: 90 UG, UNK (2 PUFFS)
  20. ACTOS 30 [Concomitant]
     Dosage: UNK
  21. LOESTRIN NOS [Concomitant]
     Active Substance: ETHINYL ESTRADIOL\NORETHINDRONE ACETATE
     Dosage: UNK
  22. KEPPRA [Concomitant]
     Active Substance: LEVETIRACETAM
     Dosage: 250 MG, 2X/DAY
  23. SIMVASTATIN. [Concomitant]
     Active Substance: SIMVASTATIN
     Dosage: 40 MG, DAILY
  24. DILANTIN [Suspect]
     Active Substance: PHENYTOIN
     Dosage: UNK
     Route: 048
  25. GLIMEPIRIDE. [Concomitant]
     Active Substance: GLIMEPIRIDE
     Indication: TYPE 2 DIABETES MELLITUS
     Dosage: 4 MG, 2X/DAY (1 PILL BREAKFAST, 1 PILL DINNER)
     Route: 048
  26. SINEMET [Concomitant]
     Active Substance: CARBIDOPA\LEVODOPA
     Dosage: 1.5 DF, 3X/DAY (25-100 MG)
     Route: 048
  27. CEFUROXIME. [Concomitant]
     Active Substance: CEFUROXIME
     Dosage: 250 MG, 2X/DAY (10 DAYS)
     Route: 048
  28. ACETAMINOPHEN. [Concomitant]
     Active Substance: ACETAMINOPHEN
     Indication: HEADACHE
     Dosage: 650 MG, EVERY 4 HRS (AS NEEDED)
     Route: 048
  29. LIPITOR [Concomitant]
     Active Substance: ATORVASTATIN CALCIUM
     Dosage: 20 MG, DAILY
     Route: 048
  30. LAMICTAL XR [Concomitant]
     Active Substance: LAMOTRIGINE
     Dosage: 300 MG, DAILY
  31. KEPPRA [Concomitant]
     Active Substance: LEVETIRACETAM
     Dosage: 500 MG, 2X/DAY
  32. GLIMEPIRIDE. [Concomitant]
     Active Substance: GLIMEPIRIDE
     Dosage: 4 MG, 1X/DAY
  33. METFORMIN HCL [Concomitant]
     Active Substance: METFORMIN HYDROCHLORIDE
     Indication: TYPE 2 DIABETES MELLITUS
     Dosage: 1000 MG, 2X/DAY
  34. LORAZEPAM. [Concomitant]
     Active Substance: LORAZEPAM
     Indication: SEIZURE
  35. TOPAMAX [Concomitant]
     Active Substance: TOPIRAMATE
     Dosage: 150 MG, DAILY (50 MG IN THE MORNING AND 100 MG IN THE NIGHT)
  36. AVAPRO 150 [Concomitant]
     Dosage: UNK
  37. EFFEXOR XR [Concomitant]
     Active Substance: VENLAFAXINE HYDROCHLORIDE
     Dosage: 25 MG, 1X/DAY (1 PILL AT BEDTIME)
  38. LANTUS INSULIN PEN [Concomitant]
     Indication: DIABETES MELLITUS
     Dosage: UNK, 1X/DAY (20 UNITS AT BEDTIME)
  39. VOLTAREN [Concomitant]
     Active Substance: DICLOFENAC SODIUM
     Dosage: UNK
  40. METFORMIN [Concomitant]
     Active Substance: METFORMIN HYDROCHLORIDE
     Dosage: 1 DF, 2X/DAY
     Route: 048
  41. GLIMEPIRIDE. [Concomitant]
     Active Substance: GLIMEPIRIDE
     Indication: BLOOD GLUCOSE ABNORMAL
     Dosage: 1 MG, 2X/DAY
  42. KEPPRA XR [Concomitant]
     Active Substance: LEVETIRACETAM
     Dosage: 750 MG, 1X/DAY
  43. LAMICTAL [Concomitant]
     Active Substance: LAMOTRIGINE
     Dosage: 200 MG, 2X/DAY
  44. AMARYL [Concomitant]
     Active Substance: GLIMEPIRIDE
     Dosage: 1 MG, DAILY (WITH BREAKFAST)
     Route: 048
  45. LIPITOR [Concomitant]
     Active Substance: ATORVASTATIN CALCIUM
     Dosage: 40 MG, 1X/DAY
  46. GLUCOVANCE [Concomitant]
     Active Substance: GLYBURIDE\METFORMIN HYDROCHLORIDE
     Dosage: UNK, 2X/DAY
  47. PAXIL [Concomitant]
     Active Substance: PAROXETINE HYDROCHLORIDE
     Dosage: 20 MG, DAILY
     Route: 048
  48. NOVOLOG [Concomitant]
     Active Substance: INSULIN ASPART
     Dosage: UNK, 2X/DAY (4-6 UNITS)
     Route: 058
  49. LAMICTAL XR [Concomitant]
     Active Substance: LAMOTRIGINE
     Dosage: 200 MG, DAILY
  50. DIVALPROEX ER [Concomitant]
     Active Substance: DIVALPROEX SODIUM
     Dosage: 500 MG, 4X/DAY
  51. NAPROXEN. [Concomitant]
     Active Substance: NAPROXEN
     Dosage: 375 MG, 2X/DAY (FOR 90 DAYS)
  52. GLIMEPIRIDE. [Concomitant]
     Active Substance: GLIMEPIRIDE
     Dosage: 1 DF, 1X/DAY
     Route: 048
  53. KEPPRA XR [Concomitant]
     Active Substance: LEVETIRACETAM
     Dosage: 500 MG, 2X/DAY
     Route: 048
  54. SINEMET [Concomitant]
     Active Substance: CARBIDOPA\LEVODOPA
     Dosage: 2 DF, 3X/DAY (25-100 MG)
     Route: 048
  55. SINEMET [Concomitant]
     Active Substance: CARBIDOPA\LEVODOPA
     Dosage: 1 DF, 3X/DAY (25-100 MG)
     Route: 048
  56. FLONASE [Concomitant]
     Active Substance: FLUTICASONE PROPIONATE
     Dosage: 50 UG, UNK
  57. ZOLPIDEM [Concomitant]
     Active Substance: ZOLPIDEM TARTRATE
     Indication: INSOMNIA
     Dosage: 5 MG, AS NEEDED
     Route: 048
  58. MELATONIN [Concomitant]
     Active Substance: MELATONIN
     Indication: SLEEP DISORDER
     Dosage: 10 MG
     Route: 048
  59. AMLODIPINE BESILATE [Concomitant]
     Active Substance: AMLODIPINE BESYLATE
     Dosage: 5 MG, 1X/DAY (1 AT BED)
  60. LEXAPRO [Concomitant]
     Active Substance: ESCITALOPRAM OXALATE
     Dosage: UNK
  61. LAMICTAL XR [Concomitant]
     Active Substance: LAMOTRIGINE
     Dosage: 200 MG, 2X/DAY
  62. LAMICTAL XR [Concomitant]
     Active Substance: LAMOTRIGINE
     Dosage: 400 MG, 2X/DAY
  63. AMBIEN [Concomitant]
     Active Substance: ZOLPIDEM TARTRATE
     Dosage: 10 MG, (1 EVERY BEDTIME FOR 90 DAYS)
  64. ATORVASTATIN CALCIUM. [Concomitant]
     Active Substance: ATORVASTATIN CALCIUM
     Dosage: 10 MG, 1X/DAY (1 EVERY BEDTIME)
     Route: 048
  65. KEPPRA XR [Concomitant]
     Active Substance: LEVETIRACETAM
     Indication: SEIZURE
     Dosage: 750 MG, 2X/DAY
     Route: 048
  66. KEPPRA XR [Concomitant]
     Active Substance: LEVETIRACETAM
     Dosage: 1250 MG, DAILY (AT NIGHT)
  67. TOPAMAX [Concomitant]
     Active Substance: TOPIRAMATE
     Dosage: 200 MG, 2X/DAY
     Route: 048
  68. MIRAPEX [Concomitant]
     Active Substance: PRAMIPEXOLE DIHYDROCHLORIDE
     Dosage: 0.125 MG, 3X/DAY
     Route: 048
  69. DEPAKOTE [Concomitant]
     Active Substance: DIVALPROEX SODIUM
     Dosage: 2 DF, 2X/DAY
  70. COZAAR [Concomitant]
     Active Substance: LOSARTAN POTASSIUM
     Dosage: 25 MG, DAILY
     Route: 048
  71. GABAPENTIN. [Concomitant]
     Active Substance: GABAPENTIN
     Dosage: 100 MG, 1X/DAY (1 EVERY BED TIME)
     Route: 048
  72. AMOXICILLIN. [Concomitant]
     Active Substance: AMOXICILLIN
     Indication: CELLULITIS
     Dosage: UNK
  73. LORAZEPAM. [Concomitant]
     Active Substance: LORAZEPAM
     Indication: ANXIETY
     Dosage: 1 MG, AS NEEDED
     Route: 048
  74. ASPIRIN. [Concomitant]
     Active Substance: ASPIRIN
     Dosage: 81 MG, DAILY
     Route: 048
  75. MECLIZINE [Concomitant]
     Active Substance: MECLIZINE HYDROCHLORIDE
     Indication: VERTIGO
     Dosage: 12.5 MG, AS NEEDED (EVERY 6 HOURS)
     Route: 048
  76. CARBATROL [Concomitant]
     Active Substance: CARBAMAZEPINE
     Dosage: 200 MG, 2X/DAY
  77. BENICAR [Concomitant]
     Active Substance: OLMESARTAN MEDOXOMIL
     Dosage: 20 MG, 1X/DAY
  78. BYETTA [Concomitant]
     Active Substance: EXENATIDE
     Indication: BLOOD GLUCOSE ABNORMAL
     Dosage: UNK
  79. MAVIK [Concomitant]
     Active Substance: TRANDOLAPRIL
     Dosage: UNK
  80. ATIVAN [Concomitant]
     Active Substance: LORAZEPAM
     Indication: ANXIETY
     Dosage: 1 MG, EVERY 4 HRS (AS NEEDED)
     Route: 048
  81. NABUMETONE. [Concomitant]
     Active Substance: NABUMETONE
     Dosage: 500 MG, 2X/DAY
  82. DILTIAZEM. [Concomitant]
     Active Substance: DILTIAZEM
     Dosage: 240 MG, DAILY
  83. PRAVASTATIN SODIUM. [Concomitant]
     Active Substance: PRAVASTATIN SODIUM
     Dosage: 20 MG, 1X/DAY (FOR 90 DAYS)

REACTIONS (28)
  - Neck pain [Unknown]
  - Incontinence [Unknown]
  - Vertigo [Unknown]
  - Diplopia [Unknown]
  - Cervical spinal stenosis [Unknown]
  - Intervertebral disc displacement [Unknown]
  - Tremor [Unknown]
  - Cerebellar atrophy [Unknown]
  - Gait disturbance [Unknown]
  - Muscular weakness [Unknown]
  - Intervertebral disc degeneration [Unknown]
  - Paraesthesia [Unknown]
  - Soft tissue swelling [Unknown]
  - Vision blurred [Unknown]
  - Hemiparesis [Unknown]
  - Multiple system atrophy [Unknown]
  - Balance disorder [Unknown]
  - Memory impairment [Unknown]
  - Asthenia [Unknown]
  - Dysarthria [Unknown]
  - Spinal osteoarthritis [Unknown]
  - Facial bones fracture [Unknown]
  - Mobility decreased [Unknown]
  - Fatigue [Unknown]
  - Parkinsonism [Unknown]
  - Fall [Not Recovered/Not Resolved]
  - Cognitive disorder [Not Recovered/Not Resolved]
  - Vertebral osteophyte [Unknown]

NARRATIVE: CASE EVENT DATE: 201407
